FAERS Safety Report 5246682-6 (Version None)
Quarter: 2007Q1

REPORT INFORMATION
  Report Type: 
  Country: None (occurrence: None)
  Receive Date: 20070226
  Receipt Date: 20070213
  Transmission Date: 20070707
  Serious: Yes (Disabling)
  Sender: FDA-Public Use
  Company Number: GB-NOVOPROD-260797

PATIENT
  Age: 33 Year
  Sex: Female

DRUGS (3)
  1. KLIOVANCE [Suspect]
     Indication: DRUG USE FOR UNKNOWN INDICATION
  2. CLOMID [Suspect]
     Indication: INFERTILITY FEMALE
     Dosage: 50 MG, UNK
     Dates: start: 20051105, end: 20060302
  3. BISOPROLOL FUMARATE [Concomitant]
     Indication: BLOOD PRESSURE INCREASED
     Dosage: 5 MG, UNK
     Dates: start: 20051223

REACTIONS (4)
  - ABDOMINAL PAIN [None]
  - DRUG INTERACTION [None]
  - DYSMENORRHOEA [None]
  - OVARIAN CYST [None]
